FAERS Safety Report 21304401 (Version 1)
Quarter: 2022Q3

REPORT INFORMATION
  Report Type: Spontaneous
  Country: US (occurrence: None)
  Receive Date: 20220907
  Receipt Date: 20220907
  Transmission Date: 20221027
  Serious: No
  Sender: FDA-Public Use
  Company Number: US-ARIS GLOBAL-202108-1324

PATIENT
  Sex: Female

DRUGS (14)
  1. OXERVATE [Suspect]
     Active Substance: CENEGERMIN-BKBJ
     Indication: Neurotrophic keratopathy
     Route: 047
     Dates: start: 20210622
  2. KELP [Concomitant]
     Active Substance: KELP
  3. CALCIUM [Concomitant]
     Active Substance: CALCIUM
     Dosage: 500(1250) MG
  4. ATORVASTATIN CALCIUM [Concomitant]
     Active Substance: ATORVASTATIN CALCIUM
  5. GLIMEPIRIDE [Concomitant]
     Active Substance: GLIMEPIRIDE
  6. METFORMIN HYDROCHLORIDE [Concomitant]
     Active Substance: METFORMIN HYDROCHLORIDE
  7. FENOFIBRATE [Concomitant]
     Active Substance: FENOFIBRATE
  8. LISINOPRIL [Concomitant]
     Active Substance: LISINOPRIL
  9. VALACYCLOVIR [Concomitant]
     Active Substance: VALACYCLOVIR HYDROCHLORIDE
  10. PREGABALIN [Concomitant]
     Active Substance: PREGABALIN
  11. PREDNISOLONE [Concomitant]
     Active Substance: PREDNISOLONE
     Dosage: 15MG/5ML
  12. MOXIFLOXACIN [Concomitant]
     Active Substance: MOXIFLOXACIN
  13. QUETIAPINE FUMARATE [Concomitant]
     Active Substance: QUETIAPINE FUMARATE
  14. VITAMIN D3 [Concomitant]
     Active Substance: CHOLECALCIFEROL

REACTIONS (2)
  - Eye pain [Unknown]
  - Vision blurred [Not Recovered/Not Resolved]
